FAERS Safety Report 16437341 (Version 2)
Quarter: 2025Q3

REPORT INFORMATION
  Report Type: Spontaneous
  Country: EU (occurrence: EU)
  Receive Date: 20190615
  Receipt Date: 20250722
  Transmission Date: 20251021
  Serious: Yes (Other)
  Sender: AUROBINDO
  Company Number: EU-AUROBINDO-AUR-APL-2019-034166

PATIENT
  Age: 75 Year
  Sex: Male

DRUGS (1)
  1. ENTACAPONE [Suspect]
     Active Substance: ENTACAPONE
     Indication: Parkinson^s disease
     Route: 065

REACTIONS (2)
  - Chronic kidney disease [Recovering/Resolving]
  - Diarrhoea [Recovered/Resolved]
